FAERS Safety Report 7429665-7 (Version None)
Quarter: 2011Q2

REPORT INFORMATION
  Report Type: 
  Country: None (occurrence: None)
  Receive Date: 20110421
  Receipt Date: 20110418
  Transmission Date: 20111010
  Serious: Yes (Death, Other)
  Sender: FDA-Public Use
  Company Number: US-ASTRAZENECA-2007UW03578

PATIENT
  Sex: Male
  Weight: 73.9 kg

DRUGS (4)
  1. SEROQUEL [Suspect]
     Indication: ANXIETY DISORDER
     Route: 048
     Dates: start: 20040801, end: 20050415
  2. XANAX [Concomitant]
     Indication: ANXIETY DISORDER
     Dates: start: 20040501, end: 20050101
  3. SEROQUEL [Suspect]
     Indication: DEPRESSION
     Route: 048
     Dates: start: 20040801, end: 20050415
  4. LEXAPRO [Concomitant]
     Indication: DEPRESSION
     Dates: start: 20040501, end: 20050101

REACTIONS (4)
  - DEATH [None]
  - SUICIDE ATTEMPT [None]
  - TYPE 2 DIABETES MELLITUS [None]
  - OVERDOSE [None]
